FAERS Safety Report 8771673 (Version 2)
Quarter: 2012Q4

REPORT INFORMATION
  Report Type: 
  Country: US (occurrence: US)
  Receive Date: 20120905
  Receipt Date: 20121031
  Transmission Date: 20130627
  Serious: No
  Sender: FDA-Public Use
  Company Number: US-ASTRAZENECA-2012SE60029

PATIENT
  Age: 37 Year
  Sex: Male
  Weight: 74.4 kg

DRUGS (2)
  1. CRESTOR [Suspect]
     Indication: LOW DENSITY LIPOPROTEIN INCREASED
     Route: 048
  2. CRESTOR [Suspect]
     Indication: ARTERIOSCLEROSIS
     Route: 048

REACTIONS (3)
  - Myalgia [Not Recovered/Not Resolved]
  - Muscle injury [Unknown]
  - Muscle tightness [Unknown]
